FAERS Safety Report 22673033 (Version 14)
Quarter: 2023Q4

REPORT INFORMATION
  Report Type: Report from Study
  Country: BR (occurrence: None)
  Receive Date: 20230705
  Receipt Date: 20231003
  Transmission Date: 20240109
  Serious: Yes (Hospitalization)
  Sender: FDA-Public Use
  Company Number: BR-Eisai Medical Research-EC-2023-143635

PATIENT
  Age: 75 Year
  Sex: Female
  Weight: 47.1 kg

DRUGS (10)
  1. LENVATINIB [Suspect]
     Active Substance: LENVATINIB
     Indication: Renal cell carcinoma
     Route: 048
     Dates: start: 20230614, end: 20230620
  2. BELZUTIFAN [Suspect]
     Active Substance: BELZUTIFAN
     Indication: Renal cell carcinoma
     Route: 048
     Dates: start: 20230614, end: 20230620
  3. XARELTO [Concomitant]
     Active Substance: RIVAROXABAN
     Dates: start: 20230413, end: 20230711
  4. PURAN [Concomitant]
     Active Substance: LEVOTHYROXINE SODIUM
     Dates: start: 20230413
  5. BROMOPRIDE [Concomitant]
     Active Substance: BROMOPRIDE
     Dates: start: 20230428, end: 20230712
  6. METOCLOPRAMIDE [Concomitant]
     Active Substance: METOCLOPRAMIDE
     Dates: start: 20230428
  7. BUTYLSCOPOLAMINE BROMIDE [Concomitant]
     Active Substance: BUTYLSCOPOLAMINE BROMIDE
     Dates: start: 20230428
  8. DEXAMETHASONE [Concomitant]
     Active Substance: DEXAMETHASONE
     Dates: start: 20230513
  9. TAMARINE [CASSIA FISTULA;SENNA ALEXANDRINA] [Concomitant]
     Dates: start: 202304, end: 20230627
  10. METAMIZOLE SODIUM [Concomitant]
     Active Substance: METAMIZOLE SODIUM
     Dates: start: 202301

REACTIONS (2)
  - Pneumonitis [Not Recovered/Not Resolved]
  - Pulmonary embolism [Not Recovered/Not Resolved]

NARRATIVE: CASE EVENT DATE: 20230621
